FAERS Safety Report 22531795 (Version 1)
Quarter: 2023Q2

REPORT INFORMATION
  Report Type: Spontaneous
  Country: US (occurrence: None)
  Receive Date: 20230606
  Receipt Date: 20230606
  Transmission Date: 20230722
  Serious: No
  Sender: FDA-Public Use
  Company Number: None

PATIENT

DRUGS (36)
  1. BEXAROTENE [Suspect]
     Active Substance: BEXAROTENE
     Indication: Cutaneous T-cell lymphoma
     Dosage: OTHER QUANTITY : 2C;?FREQUENCY : DAILY;?
     Route: 048
  2. ELIQUIS [Concomitant]
     Active Substance: APIXABAN
  3. BRILINTA [Concomitant]
     Active Substance: TICAGRELOR
  4. ALBUTEROL [Concomitant]
     Active Substance: ALBUTEROL
  5. BENZOYL PEROXIDE [Concomitant]
     Active Substance: BENZOYL PEROXIDE
  6. CALCIUM CARBONATE [Concomitant]
     Active Substance: CALCIUM CARBONATE
  7. LORATADINE [Concomitant]
     Active Substance: LORATADINE
  8. CLOBETASOL [Concomitant]
     Active Substance: CLOBETASOL
  9. DILTIAZEM [Concomitant]
     Active Substance: DILTIAZEM
  10. DOCUSATE [Concomitant]
  11. DULOXETINE [Concomitant]
     Active Substance: DULOXETINE
  12. FUROSEMIDE [Concomitant]
     Active Substance: FUROSEMIDE
  13. HEPARIN [Concomitant]
     Active Substance: HEPARIN SODIUM
  14. HYDRALAZINE [Concomitant]
     Active Substance: HYDRALAZINE HYDROCHLORIDE
  15. HYDROCORTISONE [Concomitant]
     Active Substance: HYDROCORTISONE
  16. HYDROXYZINE [Concomitant]
     Active Substance: HYDROXYZINE HYDROCHLORIDE
  17. LOPERAMIDE [Concomitant]
     Active Substance: LOPERAMIDE
  18. INTERFERON ALFA NOS [Concomitant]
     Active Substance: INTERFERON ALFA-2A OR INTERFERON ALFA-2B
  19. LIDOCAINE [Concomitant]
     Active Substance: LIDOCAINE
  20. DIPHENOXYLATE [Concomitant]
     Active Substance: DIPHENOXYLATE
  21. MAGNESIUM [Concomitant]
     Active Substance: MAGNESIUM
  22. METFORMIN [Concomitant]
     Active Substance: METFORMIN HYDROCHLORIDE
  23. SODIUM CHLORIDE [Concomitant]
     Active Substance: SODIUM CHLORIDE
  24. OXYCODONE [Concomitant]
     Active Substance: OXYCODONE
  25. PREGABALIN [Concomitant]
     Active Substance: PREGABALIN
  26. TAMSULOSIN [Concomitant]
     Active Substance: TAMSULOSIN
  27. TRAZODONE [Concomitant]
     Active Substance: TRAZODONE HYDROCHLORIDE
  28. TRIAMCINOLONE [Concomitant]
     Active Substance: TRIAMCINOLONE
  29. VITAMIN B12 [Concomitant]
     Active Substance: CYANOCOBALAMIN
  30. CITALOPRAM [Concomitant]
     Active Substance: CITALOPRAM HYDROBROMIDE
  31. TRADJENTA [Concomitant]
     Active Substance: LINAGLIPTIN
  32. CALCIUM [Concomitant]
     Active Substance: CALCIUM
  33. NEURIVA [Concomitant]
  34. HUMALOG [Concomitant]
     Active Substance: INSULIN LISPRO
  35. FENOFIBRATE [Concomitant]
     Active Substance: FENOFIBRATE
  36. LEVOTHYROXINE [Concomitant]
     Active Substance: LEVOTHYROXINE

REACTIONS (3)
  - Disease progression [None]
  - Pruritus [None]
  - Therapy interrupted [None]
